FAERS Safety Report 4548889-X (Version None)
Quarter: 2004Q4

REPORT INFORMATION
  Report Type: 
  Country: None (occurrence: None)
  Receive Date: 20041227
  Receipt Date: 20040930
  Transmission Date: 20050328
  Serious: No
  Sender: FDA-Public Use
  Company Number: 04P-163-0276247-00

PATIENT
  Age: 55 Year
  Sex: Female
  Weight: 70.3075 kg

DRUGS (5)
  1. HUMIRA [Suspect]
     Indication: ANKYLOSING SPONDYLITIS
     Dosage: 40 MG, 1 IN 2 WK, SUBCUTANEOUS
     Route: 058
     Dates: start: 20040830
  2. HYDROCHLOROTHIAZIDE [Concomitant]
  3. ESTRACE [Concomitant]
  4. PRAVASTATIN SODIUM [Concomitant]
  5. TOPROL-XL [Concomitant]

REACTIONS (5)
  - HEADACHE [None]
  - HYPERHIDROSIS [None]
  - HYPOAESTHESIA [None]
  - NAUSEA [None]
  - PARAESTHESIA [None]
